FAERS Safety Report 5282981-X (Version None)
Quarter: 2007Q2

REPORT INFORMATION
  Report Type: 
  Country: None (occurrence: None)
  Receive Date: 20070402
  Receipt Date: 20070323
  Transmission Date: 20071010
  Serious: Yes (Death)
  Sender: FDA-Public Use
  Company Number: ES-BRISTOL-MYERS SQUIBB COMPANY-13732540

PATIENT
  Age: 75 Year
  Sex: Female

DRUGS (6)
  1. ENDOXAN [Suspect]
     Route: 042
     Dates: start: 20060425, end: 20060818
  2. DOXORUBICIN HCL [Suspect]
     Dates: start: 20060425, end: 20060818
  3. SODIUM CHLORIDE [Suspect]
     Route: 042
     Dates: start: 20060425, end: 20060818
  4. VINCRISTINE [Concomitant]
     Route: 042
     Dates: start: 20060425, end: 20060818
  5. PREDNISONE [Concomitant]
     Dates: start: 20060425
  6. ONDANSETRON [Concomitant]
     Dates: start: 20060425

REACTIONS (5)
  - CARDIAC FAILURE [None]
  - CARDIOMYOPATHY [None]
  - LYMPHOMA [None]
  - PLEURAL HAEMORRHAGE [None]
  - PNEUMONIA [None]
